FAERS Safety Report 21569492 (Version 1)
Quarter: 2022Q4

REPORT INFORMATION
  Report Type: Spontaneous
  Country: US (occurrence: US)
  Receive Date: 20221109
  Receipt Date: 20221109
  Transmission Date: 20230113
  Serious: No
  Sender: FDA-Public Use
  Company Number: None

PATIENT
  Age: 11 Year
  Sex: Female

DRUGS (2)
  1. ALBUTEROL SULFATE [Suspect]
     Active Substance: ALBUTEROL SULFATE
     Indication: Product used for unknown indication
     Route: 055
  2. LEVALBUTEROL INHALATION SOLUTION [Suspect]
     Active Substance: LEVALBUTEROL HYDROCHLORIDE
     Indication: Product used for unknown indication
     Route: 055

REACTIONS (9)
  - Drug ineffective [Unknown]
  - Abnormal behaviour [Unknown]
  - Delusion [Unknown]
  - Paranoia [Unknown]
  - Mood altered [Unknown]
  - Asthma [Unknown]
  - Chest discomfort [Unknown]
  - Productive cough [Unknown]
  - Sputum discoloured [Unknown]
